FAERS Safety Report 4281755-6 (Version None)
Quarter: 2004Q1

REPORT INFORMATION
  Report Type: 
  Country: None (occurrence: None)
  Receive Date: 20040128
  Receipt Date: 20040116
  Transmission Date: 20041129
  Serious: Yes (Hospitalization)
  Sender: FDA-Public Use
  Company Number: 2004-06569

PATIENT

DRUGS (3)
  1. VISTIDE [Suspect]
     Indication: BK VIRUS INFECTION
     Dosage: 2.5 MG SC
     Route: 058
     Dates: start: 20031230, end: 20031230
  2. VISTIDE [Suspect]
     Indication: BK VIRUS INFECTION
     Dosage: 2.5 MG/KG SC
     Route: 058
     Dates: start: 20031226, end: 20031226
  3. VISTIDE [Suspect]
     Indication: BK VIRUS INFECTION
     Dosage: 5 MG/KG
     Dates: start: 20031217, end: 20031217

REACTIONS (4)
  - GRAFT VERSUS HOST DISEASE [None]
  - MEDICATION ERROR [None]
  - PYREXIA [None]
  - TOXIC SKIN ERUPTION [None]
